FAERS Safety Report 15459018 (Version 4)
Quarter: 2019Q4

REPORT INFORMATION
  Report Type: Report from Study
  Country: CN (occurrence: CN)
  Receive Date: 20181003
  Receipt Date: 20191128
  Transmission Date: 20200122
  Serious: Yes (Hospitalization)
  Sender: FDA-Public Use
  Company Number: CN-ROCHE-2190232

PATIENT
  Age: 2 Year
  Sex: Female
  Weight: 11.5 kg

DRUGS (1)
  1. TOCILIZUMAB. [Suspect]
     Active Substance: TOCILIZUMAB
     Indication: STILL^S DISEASE
     Dosage: DATE OF LAST DOSE PRIOR TO SAE: 22/SEP/2018
     Route: 042
     Dates: start: 20180922, end: 20180922

REACTIONS (2)
  - Apathy [Recovered/Resolved]
  - Leukoencephalopathy [Recovered/Resolved]

NARRATIVE: CASE EVENT DATE: 20180923
